FAERS Safety Report 9681312 (Version 3)
Quarter: 2013Q4

REPORT INFORMATION
  Report Type: Spontaneous
  Country: US (occurrence: US)
  Receive Date: 20131111
  Receipt Date: 20131120
  Transmission Date: 20140711
  Serious: Yes (Other)
  Sender: FDA-Public Use
  Company Number: US-RB-059658-13

PATIENT
  Sex: Male

DRUGS (2)
  1. CEPACOL SUGAR FREE SORE THROAT LOZENGES (BENZOCAINE) [Suspect]
     Indication: PRODUCT USED FOR UNKNOWN INDICATION
     Dosage: 1 LOSENGE ON 05-OCT-2013 AND 06-OCT-2013 EVENING
     Route: 048
     Dates: start: 20131005
  2. CEPACOL SUGAR FREE SORE THROAT LOZENGES (MENTHOL) [Suspect]

REACTIONS (3)
  - Shock hypoglycaemic [Recovered/Resolved]
  - Headache [Recovered/Resolved]
  - Dizziness [Recovered/Resolved]
